FAERS Safety Report 12904793 (Version 1)
Quarter: 2016Q4

REPORT INFORMATION
  Report Type: Report from Study
  Country: CA (occurrence: CA)
  Receive Date: 20161102
  Receipt Date: 20161102
  Transmission Date: 20170207
  Serious: Yes (Other)
  Sender: FDA-Public Use
  Company Number: CA-GILEAD-2016-0238861

PATIENT
  Age: 54 Year
  Sex: Male

DRUGS (2)
  1. IBAVYR [Suspect]
     Active Substance: RIBAVIRIN
     Indication: CHRONIC HEPATITIS C
     Dosage: 800 MG, QD
     Route: 048
     Dates: start: 20160630
  2. SOFOSBUVIR [Suspect]
     Active Substance: SOFOSBUVIR
     Indication: CHRONIC HEPATITIS C
     Dosage: 400 MG, QD
     Route: 048
     Dates: start: 20160630

REACTIONS (8)
  - Unevaluable event [Unknown]
  - Malaise [Not Recovered/Not Resolved]
  - Drug intolerance [Unknown]
  - Blood glucose decreased [Unknown]
  - Transfusion [Unknown]
  - Haemoglobin decreased [Unknown]
  - Incorrect drug administration duration [Unknown]
  - Anaemia [Unknown]
